FAERS Safety Report 4738580-9 (Version None)
Quarter: 2005Q3

REPORT INFORMATION
  Report Type: 
  Country: None (occurrence: None)
  Receive Date: 20050808
  Receipt Date: 20050808
  Transmission Date: 20060218
  Serious: Yes (Hospitalization, Other)
  Sender: FDA-Public Use
  Company Number: None

PATIENT
  Sex: Female
  Weight: 81 kg

DRUGS (4)
  1. FLUOROURACIL [Suspect]
     Indication: BREAST CANCER
     Dosage: SEE IMAGE
     Route: 042
     Dates: start: 20050715, end: 20050715
  2. EPIRUBICIN [Suspect]
     Dosage: SEE IMAGE
     Route: 042
     Dates: start: 20050715, end: 20050715
  3. CYCLOPHOSPHAMIDE [Concomitant]
     Dosage: SEE IMAGE
     Route: 042
     Dates: start: 20050715, end: 20050715
  4. CELECOXIB/PLACEBO [Suspect]
     Dosage: SEE IMAGE
     Route: 048
     Dates: start: 20050715

REACTIONS (5)
  - DIARRHOEA [None]
  - MUCOSAL INFLAMMATION [None]
  - NEUTROPENIA [None]
  - STOMATITIS [None]
  - THROMBOCYTOPENIA [None]
